FAERS Safety Report 4581767-9 (Version None)
Quarter: 2005Q1

REPORT INFORMATION
  Report Type: 
  Country: None (occurrence: None)
  Receive Date: 20050214
  Receipt Date: 20040227
  Transmission Date: 20050727
  Serious: No
  Sender: FDA-Public Use
  Company Number: US-GLAXOSMITHKLINE-A0500385A

PATIENT
  Age: 48 Year
  Sex: Female

DRUGS (9)
  1. LAMICTAL [Suspect]
     Indication: BIPOLAR DISORDER
     Dosage: 50MG PER DAY
     Route: 048
     Dates: start: 20040201, end: 20040227
  2. VALTREX [Concomitant]
  3. WELLBUTRIN [Concomitant]
  4. GLUCOPHAGE XR [Concomitant]
  5. HYDROCHLOROTHIAZIDE [Concomitant]
  6. DIOVAN [Concomitant]
  7. SYNTHROID [Concomitant]
  8. ASPIRIN [Concomitant]
  9. ESTRATEST [Concomitant]

REACTIONS (1)
  - LYMPHADENOPATHY [None]
